FAERS Safety Report 7801613-7 (Version None)
Quarter: 2011Q4

REPORT INFORMATION
  Report Type: 
  Country: None (occurrence: None)
  Receive Date: 20111007
  Receipt Date: 20110927
  Transmission Date: 20120403
  Serious: Yes (Hospitalization, Other)
  Sender: FDA-Public Use
  Company Number: BE-GENZYME-CLOF-1001803

PATIENT
  Sex: Female
  Weight: 61 kg

DRUGS (9)
  1. EVOLTRA [Suspect]
     Indication: ACUTE LEUKAEMIA
     Dosage: 15 MG, UNK
     Route: 042
     Dates: start: 20110920, end: 20110924
  2. URSODIOL [Concomitant]
     Indication: PROPHYLAXIS
     Dosage: 750 MG, UNK
     Route: 048
     Dates: start: 20110920, end: 20110925
  3. ALPROSTADIL [Concomitant]
     Indication: PROPHYLAXIS
     Dosage: 0.5 MG, UNK
     Route: 042
     Dates: start: 20110920, end: 20110925
  4. MEROPENEM [Concomitant]
     Indication: PROPHYLAXIS
     Dosage: 2 G, UNK
     Route: 042
     Dates: start: 20110921, end: 20110925
  5. AMSACRINE [Suspect]
     Indication: ACUTE LEUKAEMIA
     Dosage: 183 MG, UNK
     Route: 042
     Dates: start: 20110923, end: 20110925
  6. CYTARABINE [Suspect]
     Indication: ACUTE LEUKAEMIA
     Dosage: 1530 MG X2
     Route: 042
     Dates: start: 20110920, end: 20110925
  7. CIPROFLOXACIN HCL [Concomitant]
     Indication: PROPHYLAXIS
     Dosage: 500 MG, UNK
     Route: 048
     Dates: start: 20110920, end: 20110925
  8. ENOXAPARIN [Concomitant]
     Indication: PROPHYLAXIS
     Dosage: 40 MG, UNK
     Dates: start: 20110920, end: 20110925
  9. VANCOMYCIN [Concomitant]
     Indication: PYREXIA
     Dosage: 500 MG, UNK
     Route: 042
     Dates: start: 20110923, end: 20110925

REACTIONS (1)
  - HEPATITIS TOXIC [None]
